FAERS Safety Report 4622448-2 (Version None)
Quarter: 2005Q1

REPORT INFORMATION
  Report Type: 
  Country: None (occurrence: None)
  Receive Date: 20050325
  Receipt Date: 20050325
  Transmission Date: 20050727
  Serious: Yes (Other)
  Sender: FDA-Public Use
  Company Number: None

PATIENT
  Age: 55 Year
  Sex: Male
  Weight: 78.4723 kg

DRUGS (11)
  1. T-20/FUZEON [Suspect]
     Indication: HIV INFECTION
     Dosage: 90 MG SC BID
     Route: 058
  2. TRICOR [Concomitant]
  3. OMEPRAZOLE [Concomitant]
  4. KALETRA [Concomitant]
  5. LIPITOR [Concomitant]
  6. VIREAD [Concomitant]
  7. BACTRIM [Concomitant]
  8. TRIZIVIR [Concomitant]
  9. TOPROLOL [Concomitant]
  10. ANDROGEL [Concomitant]
  11. CELEXA [Concomitant]

REACTIONS (1)
  - HEADACHE [None]
